FAERS Safety Report 14096651 (Version 3)
Quarter: 2017Q4

REPORT INFORMATION
  Report Type: Report from Study
  Country: KR (occurrence: KR)
  Receive Date: 20171017
  Receipt Date: 20171125
  Transmission Date: 20180321
  Serious: Yes (Death)
  Sender: FDA-Public Use
  Company Number: KR-CONCORDIA PHARMACEUTICALS INC.-E2B_00008424

PATIENT
  Age: 45 Year
  Sex: Female

DRUGS (5)
  1. ETOPOSIDE. [Suspect]
     Active Substance: ETOPOSIDE
     Indication: ANGIOCENTRIC LYMPHOMA
     Dosage: ON DAYS 1 - 3; IMEP COMBINATION CHEMOTHERAPY
     Route: 042
  2. METHOTREXATE. [Suspect]
     Active Substance: METHOTREXATE
     Indication: ANGIOCENTRIC LYMPHOMA
     Dosage: ON DAYS 3 - 10; IMEP COMBINATION CHEMOTHERAPY
     Route: 042
  3. MESNA. [Suspect]
     Active Substance: MESNA
     Indication: PROPHYLAXIS
     Dosage: IMEP COMBINATION CHEMOTHERAPY
  4. PREDNISOLONE. [Suspect]
     Active Substance: PREDNISOLONE
     Indication: ANGIOCENTRIC LYMPHOMA
     Dosage: ON DAYS 1-5; IMEP COMBINATION CHEMOTHERAPY
     Route: 048
  5. IFOSFAMIDE. [Suspect]
     Active Substance: IFOSFAMIDE
     Indication: ANGIOCENTRIC LYMPHOMA
     Dosage: 1.5 G/M2 ON DAYS 1 - 3; IMEP COMBINATION CHEMOTHERAPY
     Route: 042

REACTIONS (2)
  - Sepsis [Fatal]
  - Pneumonia [Fatal]
